FAERS Safety Report 9355536 (Version 1)
Quarter: 2013Q2

REPORT INFORMATION
  Report Type: Spontaneous
  Country: FR (occurrence: FR)
  Receive Date: 20130619
  Receipt Date: 20130619
  Transmission Date: 20140414
  Serious: Yes (Hospitalization)
  Sender: FDA-Public Use
  Company Number: FR-009507513-1306FRA006445

PATIENT
  Age: 91 Year
  Sex: Female

DRUGS (1)
  1. FOSAVANCE [Suspect]
     Route: 048

REACTIONS (1)
  - Dermatitis bullous [Unknown]
